FAERS Safety Report 17284682 (Version 4)
Quarter: 2020Q1

REPORT INFORMATION
  Report Type: Spontaneous
  Country: US (occurrence: US)
  Receive Date: 20200117
  Receipt Date: 20200325
  Transmission Date: 20200409
  Serious: Yes (Hospitalization)
  Sender: FDA-Public Use
  Company Number: US-PFIZER INC-2019278334

PATIENT
  Age: 74 Year
  Sex: Female

DRUGS (2)
  1. DETROL LA [Suspect]
     Active Substance: TOLTERODINE TARTRATE
     Indication: MICTURITION URGENCY
     Dosage: 1 DF, DAILY
     Route: 048
     Dates: start: 201903, end: 201904
  2. DETROL LA [Suspect]
     Active Substance: TOLTERODINE TARTRATE
     Dosage: 4 MG, 1X/DAY
     Route: 048
     Dates: start: 20190813

REACTIONS (5)
  - Depression [Unknown]
  - Gait disturbance [Not Recovered/Not Resolved]
  - Product prescribing error [Unknown]
  - Amnesia [Unknown]
  - Auditory disorder [Unknown]

NARRATIVE: CASE EVENT DATE: 2019
